FAERS Safety Report 5152284-2 (Version None)
Quarter: 2006Q4

REPORT INFORMATION
  Report Type: 
  Country: None (occurrence: None)
  Receive Date: 20061116
  Receipt Date: 20060920
  Transmission Date: 20070319
  Serious: Yes (Hospitalization)
  Sender: FDA-Public Use
  Company Number: JP-MERCK-0609USA05603

PATIENT
  Age: 74 Year
  Sex: Male
  Weight: 74 kg

DRUGS (12)
  1. PEPCID [Suspect]
     Indication: GASTRIC ULCER
     Route: 041
     Dates: start: 20060718, end: 20060724
  2. PEPCID RPD [Suspect]
     Indication: GASTRIC ULCER HAEMORRHAGE
     Route: 048
     Dates: start: 20060822, end: 20060907
  3. PANALDINE [Suspect]
     Indication: ANGINA PECTORIS
     Route: 048
     Dates: start: 20060725, end: 20060726
  4. PAZUCROSS [Suspect]
     Indication: SEPSIS
     Route: 051
     Dates: start: 20060806, end: 20060814
  5. ARTIST [Suspect]
     Indication: MYOCARDIAL INFARCTION
     Route: 048
     Dates: start: 20060726, end: 20060823
  6. ASPIRIN [Suspect]
     Indication: ANGINA PECTORIS
     Route: 048
     Dates: start: 20060726, end: 20060806
  7. VASOTEC [Suspect]
     Indication: HYPERTENSION
     Route: 048
     Dates: start: 20060726, end: 20060822
  8. SIGMART [Suspect]
     Indication: MYOCARDIAL INFARCTION
     Route: 048
     Dates: start: 20060726, end: 20060823
  9. PEPCID [Suspect]
     Route: 048
     Dates: start: 20060726, end: 20060806
  10. LASIX [Concomitant]
     Indication: MYOCARDIAL INFARCTION
     Route: 065
     Dates: start: 20061001
  11. ALDACTONE [Concomitant]
     Indication: MYOCARDIAL INFARCTION
     Route: 065
     Dates: start: 20061001
  12. AMLODIPINE BESYLATE [Concomitant]
     Indication: MYOCARDIAL INFARCTION
     Route: 065
     Dates: start: 20061003

REACTIONS (7)
  - ALANINE AMINOTRANSFERASE INCREASED [None]
  - ASPARTATE AMINOTRANSFERASE INCREASED [None]
  - BLOOD ALKALINE PHOSPHATASE INCREASED [None]
  - CORONARY ARTERY BYPASS [None]
  - GAMMA-GLUTAMYLTRANSFERASE INCREASED [None]
  - LIVER DISORDER [None]
  - PYREXIA [None]
